FAERS Safety Report 15720008 (Version 1)
Quarter: 2018Q4

REPORT INFORMATION
  Report Type: Spontaneous
  Country: CH (occurrence: CH)
  Receive Date: 20181213
  Receipt Date: 20181213
  Transmission Date: 20190205
  Serious: Yes (Death, Hospitalization)
  Sender: FDA-Public Use
  Company Number: CH-JNJFOC-20181141161

PATIENT
  Age: 80 Year
  Sex: Male
  Weight: 70 kg

DRUGS (14)
  1. XARELTO [Suspect]
     Active Substance: RIVAROXABAN
     Indication: ATRIAL FIBRILLATION
     Route: 048
     Dates: start: 201603, end: 20180728
  2. XARELTO [Suspect]
     Active Substance: RIVAROXABAN
     Indication: CORONARY ARTERY DISEASE
     Route: 048
     Dates: start: 201603, end: 20180728
  3. BUDESONID [Concomitant]
     Active Substance: BUDESONIDE
     Route: 065
  4. DERMOVATE [Concomitant]
     Active Substance: CLOBETASOL
     Route: 065
  5. DUOTRAV [Concomitant]
     Active Substance: TIMOLOL MALEATE\TRAVOPROST
     Route: 047
  6. IRBESARTAN. [Concomitant]
     Active Substance: IRBESARTAN
     Route: 065
  7. LERCANIDIPIN SANDOZ [Concomitant]
     Active Substance: LERCANIDIPINE HYDROCHLORIDE
     Route: 065
  8. TRUSOPT [Concomitant]
     Active Substance: DORZOLAMIDE HYDROCHLORIDE
     Route: 047
  9. METO ZEROK [Concomitant]
     Active Substance: METOPROLOL SUCCINATE
     Route: 065
  10. ZOCOR [Concomitant]
     Active Substance: SIMVASTATIN
     Route: 065
  11. PANTOPRAZOL MEPHA [Concomitant]
     Active Substance: PANTOPRAZOLE SODIUM
     Route: 065
  12. TEBOKAN [Concomitant]
     Active Substance: GINKGO
     Route: 065
  13. AMIODARON-MEPHA [Concomitant]
     Active Substance: AMIODARONE
     Route: 065
  14. DUOTRAV [Concomitant]
     Active Substance: TIMOLOL MALEATE\TRAVOPROST
     Route: 065

REACTIONS (2)
  - Basal ganglia haemorrhage [Fatal]
  - Cerebral ventricle collapse [Fatal]

NARRATIVE: CASE EVENT DATE: 20180728
